FAERS Safety Report 10100290 (Version 3)
Quarter: 2015Q3

REPORT INFORMATION
  Report Type: Spontaneous
  Country: US (occurrence: US)
  Receive Date: 20140423
  Receipt Date: 20150814
  Transmission Date: 20151125
  Serious: No
  Sender: FDA-Public Use
  Company Number: US-GILEAD-2013-0076329

PATIENT
  Age: 82 Year
  Sex: Female

DRUGS (3)
  1. ADCIRCA [Concomitant]
     Active Substance: TADALAFIL
  2. LETAIRIS [Suspect]
     Active Substance: AMBRISENTAN
     Indication: PRODUCT USED FOR UNKNOWN INDICATION
     Dosage: 5 MG, QD
     Dates: start: 20130507
  3. LETAIRIS [Suspect]
     Active Substance: AMBRISENTAN
     Dosage: 2.5 MG, QD

REACTIONS (5)
  - Malaise [Unknown]
  - Abdominal discomfort [Unknown]
  - Dysentery [Unknown]
  - Vomiting [Unknown]
  - Diarrhoea [Unknown]
